FAERS Safety Report 20455322 (Version 1)
Quarter: 2022Q1

REPORT INFORMATION
  Report Type: Spontaneous
  Country: US (occurrence: US)
  Receive Date: 20220210
  Receipt Date: 20220210
  Transmission Date: 20220424
  Serious: No
  Sender: FDA-Public Use
  Company Number: US-DECIPHERA PHARMACEUTICALS LLC-2022US000023

PATIENT
  Age: 73 Year
  Sex: Female

DRUGS (1)
  1. QINLOCK [Suspect]
     Active Substance: RIPRETINIB
     Indication: Gastrointestinal stromal tumour
     Dosage: 150 MILLIGRAM, QD
     Route: 048
     Dates: start: 20220110

REACTIONS (6)
  - Oropharyngeal pain [Unknown]
  - Ear pain [Unknown]
  - Rhinorrhoea [Unknown]
  - Headache [Not Recovered/Not Resolved]
  - Pruritus [Unknown]
  - Constipation [Unknown]

NARRATIVE: CASE EVENT DATE: 20220101
